FAERS Safety Report 23135971 (Version 2)
Quarter: 2023Q4

REPORT INFORMATION
  Report Type: Report from Study
  Country: AR (occurrence: AR)
  Receive Date: 20231102
  Receipt Date: 20231130
  Transmission Date: 20240110
  Serious: Yes (Other)
  Sender: FDA-Public Use
  Company Number: AR-ABBVIE-5476048

PATIENT
  Sex: Male

DRUGS (1)
  1. RINVOQ [Suspect]
     Active Substance: UPADACITINIB
     Indication: Rheumatoid arthritis
     Dosage: FORM STRENGTH: 15 MG, LAST ADMIN DATE 2023
     Route: 048
     Dates: start: 20230805

REACTIONS (8)
  - Benign hepatic neoplasm [Unknown]
  - Gastrointestinal pain [Not Recovered/Not Resolved]
  - Pain [Unknown]
  - Renal pain [Not Recovered/Not Resolved]
  - Laboratory test abnormal [Not Recovered/Not Resolved]
  - Therapy cessation [Unknown]
  - Haemangioma of liver [Unknown]
  - Internal haemorrhage [Unknown]

NARRATIVE: CASE EVENT DATE: 20230101
